FAERS Safety Report 7942407-1 (Version None)
Quarter: 2011Q4

REPORT INFORMATION
  Report Type: 
  Country: None (occurrence: None)
  Receive Date: 20111122
  Receipt Date: 20110623
  Transmission Date: 20120403
  Serious: Yes (Other)
  Sender: FDA-Public Use
  Company Number: PHHY2011US56268

PATIENT
  Age: 46 Year
  Sex: Female

DRUGS (1)
  1. GILENYA [Suspect]
     Indication: MULTIPLE SCLEROSIS
     Dosage: 0.5 MG, ONE CAPSULE DAILY, ORAL
     Route: 048
     Dates: start: 20110617

REACTIONS (4)
  - FATIGUE [None]
  - NAUSEA [None]
  - HERPES ZOSTER [None]
  - PARAESTHESIA [None]
